FAERS Safety Report 6187321-X (Version None)
Quarter: 2009Q2

REPORT INFORMATION
  Report Type: 
  Country: None (occurrence: None)
  Receive Date: 20090512
  Receipt Date: 20090506
  Transmission Date: 20091009
  Serious: Yes (Other)
  Sender: FDA-Public Use
  Company Number: CA-ABBOTT-09P-028-0572202-00

PATIENT
  Sex: Female
  Weight: 77.634 kg

DRUGS (8)
  1. HUMIRA [Suspect]
     Indication: RHEUMATOID ARTHRITIS
     Route: 058
     Dates: start: 20061208, end: 20090424
  2. METHOTREXATE [Concomitant]
     Indication: DRUG USE FOR UNKNOWN INDICATION
     Route: 058
  3. ALTACE [Concomitant]
     Indication: DRUG USE FOR UNKNOWN INDICATION
  4. RANITIDINE [Concomitant]
     Indication: DRUG USE FOR UNKNOWN INDICATION
  5. FOLIC ACID [Concomitant]
     Indication: DRUG USE FOR UNKNOWN INDICATION
     Dosage: 5 MG 1/2 TABS 3 X WEEK
  6. HYDROCHLOROTHIAZIDE [Concomitant]
     Indication: DRUG USE FOR UNKNOWN INDICATION
  7. METFORMIN HCL [Concomitant]
     Indication: DRUG USE FOR UNKNOWN INDICATION
  8. NORVASC [Concomitant]
     Indication: DRUG USE FOR UNKNOWN INDICATION

REACTIONS (3)
  - AORTIC VALVE INCOMPETENCE [None]
  - ASTHENIA [None]
  - DYSPNOEA [None]
